FAERS Safety Report 5613953-0 (Version None)
Quarter: 2008Q1

REPORT INFORMATION
  Report Type: 
  Country: None (occurrence: None)
  Receive Date: 20080129
  Receipt Date: 20080110
  Transmission Date: 20080703
  Serious: Yes (Death)
  Sender: FDA-Public Use
  Company Number: 2008JP000133

PATIENT
  Age: 1 Month
  Sex: Male

DRUGS (1)
  1. FUNGUARD               (MICAFUNGIN) [Suspect]
     Dosage: IV DRIP
     Route: 041
     Dates: start: 20070802, end: 20070814

REACTIONS (4)
  - DISSEMINATED INTRAVASCULAR COAGULATION IN NEWBORN [None]
  - MULTI-ORGAN FAILURE [None]
  - NEONATAL ASPHYXIA [None]
  - NEONATAL CARDIAC FAILURE [None]
